FAERS Safety Report 9460856 (Version 1)
Quarter: 2013Q3

REPORT INFORMATION
  Report Type: Spontaneous
  Country: US (occurrence: US)
  Receive Date: 20130816
  Receipt Date: 20130816
  Transmission Date: 20140515
  Serious: Yes (Other)
  Sender: FDA-Public Use
  Company Number: US-JNJCP-30000174750

PATIENT
  Sex: Female

DRUGS (7)
  1. NEUTROGENA HEALTHY SKIN FACE LOTION WITH SPF 15 [Suspect]
     Indication: PRODUCT USED FOR UNKNOWN INDICATION
     Route: 061
  2. NO DRUG NAME [Concomitant]
  3. NO DRUG NAME [Concomitant]
  4. NO DRUG NAME [Concomitant]
  5. NEUTROGENA PRODUCTS [Suspect]
     Indication: PRODUCT USED FOR UNKNOWN INDICATION
     Route: 061
  6. NO DRUG NAME [Concomitant]
  7. NO DRUG NAME [Concomitant]

REACTIONS (4)
  - Application site pruritus [Recovered/Resolved]
  - Application site pain [Recovered/Resolved]
  - Application site rash [Recovered/Resolved]
  - Application site papules [Recovered/Resolved]
